FAERS Safety Report 5921289-3 (Version None)
Quarter: 2008Q4

REPORT INFORMATION
  Report Type: 
  Country: None (occurrence: None)
  Receive Date: 20081014
  Receipt Date: 20080926
  Transmission Date: 20090506
  Serious: Yes (Hospitalization)
  Sender: FDA-Public Use
  Company Number: 2008BI025324

PATIENT
  Age: 58 Year
  Sex: Female

DRUGS (3)
  1. TYSABRI [Suspect]
     Indication: MULTIPLE SCLEROSIS
     Dosage: 300 MG; QM;IV
     Route: 042
     Dates: start: 20071101, end: 20080803
  2. . [Concomitant]
  3. . [Concomitant]

REACTIONS (1)
  - GLIOBLASTOMA [None]
